FAERS Safety Report 10014434 (Version 1)
Quarter: 2014Q1

REPORT INFORMATION
  Report Type: Report from Study
  Country: GB (occurrence: GB)
  Receive Date: 20140317
  Receipt Date: 20140317
  Transmission Date: 20141002
  Serious: Yes (Hospitalization)
  Sender: FDA-Public Use
  Company Number: GB-JNJFOC-20140303972

PATIENT
  Age: 77 Year
  Sex: Male
  Weight: 86 kg

DRUGS (10)
  1. USTEKINUMAB [Suspect]
     Indication: PSORIASIS
     Route: 058
     Dates: start: 20100416
  2. BENDROFLUAZIDE [Concomitant]
     Route: 065
     Dates: start: 20100127
  3. HYDROXYZINE [Concomitant]
     Route: 065
     Dates: start: 20100127
  4. LANSOPRAZOLE [Concomitant]
     Route: 065
     Dates: start: 20100127
  5. PARACETAMOL [Concomitant]
     Route: 065
     Dates: start: 20100127
  6. ACITRETIN [Concomitant]
     Route: 065
     Dates: start: 20100816
  7. RAMIPRIL [Concomitant]
     Route: 065
     Dates: start: 20111007
  8. AMLODIPINE [Concomitant]
     Route: 065
     Dates: start: 20111007
  9. METFORMIN [Concomitant]
     Route: 065
     Dates: start: 20120213
  10. SIMVASTATIN [Concomitant]
     Route: 065
     Dates: start: 20120213

REACTIONS (1)
  - Syncope [Recovered/Resolved]
